FAERS Safety Report 9253415 (Version 4)
Quarter: 2013Q3

REPORT INFORMATION
  Report Type: Report from Study
  Country: FR (occurrence: FR)
  Receive Date: 20130425
  Receipt Date: 20130708
  Transmission Date: 20140515
  Serious: Yes (Hospitalization, Other)
  Sender: FDA-Public Use
  Company Number: FR-ROCHE-1216409

PATIENT
  Age: 70 Year
  Sex: Male
  Weight: 74 kg

DRUGS (5)
  1. TOCILIZUMAB [Suspect]
     Indication: RHEUMATOID ARTHRITIS
     Dosage: TOTAL MONTHLY DOSE: 590 MG
     Route: 042
     Dates: start: 20130124
  2. TOCILIZUMAB [Suspect]
     Route: 042
     Dates: start: 20130221
  3. CORTANCYL [Concomitant]
     Indication: RHEUMATOID ARTHRITIS
     Route: 065
     Dates: start: 20130213, end: 20130213
  4. CORTANCYL [Concomitant]
     Route: 065
     Dates: start: 20130214
  5. LANZOR [Concomitant]
     Route: 065
     Dates: start: 20130213

REACTIONS (3)
  - Acute coronary syndrome [Recovered/Resolved]
  - Escherichia urinary tract infection [Recovered/Resolved]
  - Dizziness [Recovered/Resolved]
